FAERS Safety Report 13681338 (Version 1)
Quarter: 2017Q2

REPORT INFORMATION
  Report Type: Spontaneous
  Country: US (occurrence: US)
  Receive Date: 20170622
  Receipt Date: 20170622
  Transmission Date: 20170830
  Serious: Yes (Other)
  Sender: FDA-Public Use
  Company Number: None

PATIENT
  Age: 50 Year
  Sex: Male

DRUGS (1)
  1. QUINIDINE [Suspect]
     Active Substance: QUINIDINE
     Indication: BABESIOSIS
     Dates: start: 20170407, end: 20170407

REACTIONS (2)
  - Electrocardiogram QT prolonged [None]
  - Wrong drug administered [None]

NARRATIVE: CASE EVENT DATE: 20170408
